FAERS Safety Report 6674439-8 (Version None)
Quarter: 2010Q2

REPORT INFORMATION
  Report Type: 
  Country: None (occurrence: None)
  Receive Date: 20100409
  Receipt Date: 20100330
  Transmission Date: 20101027
  Serious: Yes (Hospitalization)
  Sender: FDA-Public Use
  Company Number: PHHY2010PK18623

PATIENT
  Age: 60 Year
  Sex: Male
  Weight: 65 kg

DRUGS (1)
  1. RASILEZ [Suspect]
     Indication: HYPERTENSION
     Dosage: 300 MG DAILY
     Route: 048
     Dates: start: 20100330

REACTIONS (2)
  - ACUTE PULMONARY OEDEMA [None]
  - BLOOD PRESSURE INCREASED [None]
